FAERS Safety Report 9229380 (Version 1)
Quarter: 2013Q2

REPORT INFORMATION
  Report Type: Spontaneous
  Country: US (occurrence: US)
  Receive Date: 20130412
  Receipt Date: 20130412
  Transmission Date: 20140414
  Serious: Yes (Hospitalization)
  Sender: FDA-Public Use
  Company Number: US-ASTELLAS-2013US000913

PATIENT
  Age: 47 Year
  Sex: Female
  Weight: 97 kg

DRUGS (1)
  1. PROGRAF [Suspect]
     Indication: RENAL TRANSPLANT
     Dosage: 4 MG EVERY MORNING, 3 MG EVERY EVENING
     Route: 048
     Dates: start: 20061212

REACTIONS (2)
  - Blood creatinine increased [Unknown]
  - Blood urea increased [Unknown]
